FAERS Safety Report 9362791 (Version 2)
Quarter: 2013Q3

REPORT INFORMATION
  Report Type: Spontaneous
  Country: US (occurrence: US)
  Receive Date: 20130624
  Receipt Date: 20130722
  Transmission Date: 20140515
  Serious: No
  Sender: FDA-Public Use
  Company Number: US-009507513-1306USA007744

PATIENT
  Age: 24 Year
  Sex: Female
  Weight: 63.39 kg

DRUGS (1)
  1. NEXPLANON [Suspect]

REACTIONS (2)
  - Device difficult to use [Unknown]
  - Product quality issue [Unknown]
